FAERS Safety Report 17704563 (Version 1)
Quarter: 2020Q2

REPORT INFORMATION
  Report Type: Spontaneous
  Country: SE (occurrence: SE)
  Receive Date: 20200424
  Receipt Date: 20200424
  Transmission Date: 20200714
  Serious: Yes (Hospitalization)
  Sender: FDA-Public Use
  Company Number: SE-BAXTER-2020BAX008578

PATIENT
  Age: 43 Year
  Sex: Female
  Weight: 70 kg

DRUGS (4)
  1. CYMBALTA [Concomitant]
     Active Substance: DULOXETINE HYDROCHLORIDE
     Indication: PRODUCT USED FOR UNKNOWN INDICATION
     Route: 065
     Dates: start: 201906, end: 20190812
  2. GABAPENTIN. [Concomitant]
     Active Substance: GABAPENTIN
     Indication: PRODUCT USED FOR UNKNOWN INDICATION
     Route: 065
     Dates: start: 20190301
  3. SENDOXAN 1000 MG PULVER TILL INJEKTIONSV?TSKA, L?SNING [Suspect]
     Active Substance: CYCLOPHOSPHAMIDE
     Indication: MYELITIS
     Dosage: DOSE: 1 (UNIT NOT REPORTED)
     Route: 042
     Dates: start: 20190710, end: 20190710
  4. PREDNISOLONE. [Concomitant]
     Active Substance: PREDNISOLONE
     Indication: PRODUCT USED FOR UNKNOWN INDICATION
     Route: 065
     Dates: start: 201905, end: 20190812

REACTIONS (4)
  - Tunnel vision [Recovered/Resolved with Sequelae]
  - Amnesia [Recovered/Resolved with Sequelae]
  - Dizziness [Recovered/Resolved with Sequelae]
  - Aphasia [Recovered/Resolved with Sequelae]

NARRATIVE: CASE EVENT DATE: 20190710
